FAERS Safety Report 6055735-4 (Version None)
Quarter: 2009Q1

REPORT INFORMATION
  Report Type: 
  Country: None (occurrence: None)
  Receive Date: 20090128
  Receipt Date: 20090123
  Transmission Date: 20090719
  Serious: Yes (Hospitalization)
  Sender: FDA-Public Use
  Company Number: US-AMGEN-US304312

PATIENT
  Sex: Male
  Weight: 94.9 kg

DRUGS (13)
  1. ARANESP [Suspect]
     Indication: ANAEMIA OF MALIGNANT DISEASE
     Route: 058
     Dates: start: 20080211, end: 20080722
  2. ALLOPURINOL [Concomitant]
     Route: 048
     Dates: start: 20080220
  3. EXCEDRIN [Concomitant]
     Route: 065
     Dates: start: 20071231
  4. NAPROXEN [Concomitant]
     Route: 048
     Dates: start: 20080505
  5. METOPROLOL TARTRATE [Concomitant]
     Route: 048
     Dates: start: 20080801
  6. LISINOPRIL [Concomitant]
     Route: 048
     Dates: end: 20080801
  7. PEPCID [Concomitant]
     Route: 048
     Dates: start: 20071231
  8. THIOTHIXENE [Concomitant]
     Route: 048
     Dates: start: 20071231
  9. RITUXAN [Concomitant]
     Route: 042
     Dates: start: 20080125, end: 20080602
  10. FLUDARABINE [Concomitant]
     Route: 042
     Dates: start: 20080201
  11. IMDUR [Concomitant]
     Route: 048
  12. POTASSIUM CHLORIDE [Concomitant]
     Route: 048
  13. SIMVASTATIN [Concomitant]
     Route: 048

REACTIONS (9)
  - ACCELERATED HYPERTENSION [None]
  - ANAEMIA [None]
  - ASTHENIA [None]
  - BONE MARROW FAILURE [None]
  - FATIGUE [None]
  - PANCYTOPENIA [None]
  - THERAPEUTIC RESPONSE DECREASED [None]
  - VENTRICULAR TACHYCARDIA [None]
  - VITAMIN B12 DEFICIENCY [None]
